FAERS Safety Report 7010934-X (Version None)
Quarter: 2010Q3

REPORT INFORMATION
  Report Type: 
  Country: None (occurrence: None)
  Receive Date: 20100923
  Receipt Date: 20100923
  Transmission Date: 20110219
  Serious: Yes (Other)
  Sender: FDA-Public Use
  Company Number: None

PATIENT
  Sex: Female

DRUGS (2)
  1. FLUOXETINE [Suspect]
     Indication: DEPRESSION
     Dosage: 20MG PO DAILY
     Dates: start: 20100910
  2. FLUOXETINE [Suspect]
     Dosage: 10MG PO DAILY
     Route: 048

REACTIONS (1)
  - TREMOR [None]
